FAERS Safety Report 10803754 (Version 1)
Quarter: 2015Q1

REPORT INFORMATION
  Report Type: Spontaneous
  Country: JP (occurrence: JP)
  Receive Date: 20150217
  Receipt Date: 20150217
  Transmission Date: 20150721
  Serious: Yes (Hospitalization)
  Sender: FDA-Public Use
  Company Number: JP-MYLANLABS-2015M1004639

PATIENT

DRUGS (16)
  1. LEVODOPA [Suspect]
     Active Substance: LEVODOPA
     Route: 065
  2. FLUPHENAZINE [Concomitant]
     Active Substance: FLUPHENAZINE
     Dosage: 12.5MG/MONTH
     Route: 030
  3. LITHIUM [Concomitant]
     Active Substance: LITHIUM CARBONATE
     Dosage: 800MG/DAY
     Route: 065
  4. CABERGOLINE. [Concomitant]
     Active Substance: CABERGOLINE
     Dosage: 0.25MG/DAY
     Route: 065
  5. ROPINIROLE. [Concomitant]
     Active Substance: ROPINIROLE
     Dosage: AT 2, 12, 5 9, 5 AND 4MG/DAY AT DIFFERENT INTERVALS
     Route: 065
  6. BROMOCRIPTINE [Concomitant]
     Active Substance: BROMOCRIPTINE
     Dosage: 10MG/DAY
     Route: 065
  7. QUETIAPINE [Concomitant]
     Active Substance: QUETIAPINE
     Dosage: 200MG/DAY
     Route: 065
  8. OLANZAPINE. [Concomitant]
     Active Substance: OLANZAPINE
     Dosage: 10MG/DAY
     Route: 065
  9. LEVODOPA [Suspect]
     Active Substance: LEVODOPA
     Indication: PARKINSON^S DISEASE
     Route: 065
  10. CARBIDOPA,LEVODOPA [Suspect]
     Active Substance: CARBIDOPA\LEVODOPA
     Route: 065
  11. TRIHEXYPHENIDYL [Concomitant]
     Active Substance: TRIHEXYPHENIDYL
     Dosage: 4MG/DAY
     Route: 065
  12. PERGOLIDE [Concomitant]
     Active Substance: PERGOLIDE
     Dosage: 0.5MG/DAY
     Route: 065
  13. PRAMIPEXOLE [Concomitant]
     Active Substance: PRAMIPEXOLE
     Dosage: 1.5MG/DAY
     Route: 065
  14. YOKUKANSAN [Concomitant]
     Active Substance: HERBALS
     Dosage: 7500MG/DAY
     Route: 065
  15. BIPERIDEN [Concomitant]
     Active Substance: BIPERIDEN
     Dosage: 5 MG/DAY
     Route: 065
  16. TIMIPERONE [Concomitant]
     Active Substance: TIMIPERONE
     Dosage: 12MG/DAY
     Route: 042

REACTIONS (2)
  - Parkinson^s disease [Recovering/Resolving]
  - Psychotic behaviour [Recovering/Resolving]
